FAERS Safety Report 7638317-X (Version None)
Quarter: 2011Q3

REPORT INFORMATION
  Report Type: 
  Country: None (occurrence: None)
  Receive Date: 20110720
  Receipt Date: 20110712
  Transmission Date: 20111222
  Serious: Yes (Hospitalization)
  Sender: FDA-Public Use
  Company Number: UTC-007453

PATIENT
  Age: 62 Year
  Sex: Female

DRUGS (2)
  1. REMODULIN [Suspect]
     Indication: PULMONARY ARTERIAL HYPERTENSION
     Dosage: SEE IMAGE
     Route: 058
     Dates: start: 20110525
  2. REMODULIN [Suspect]
     Indication: PULMONARY ARTERIAL HYPERTENSION
     Dosage: SEE IMAGE
     Route: 058
     Dates: start: 20110511, end: 20110525

REACTIONS (2)
  - PULMONARY OEDEMA [None]
  - INCORRECT DOSE ADMINISTERED [None]
